FAERS Safety Report 10201796 (Version 1)
Quarter: 2014Q2

REPORT INFORMATION
  Report Type: Report from Study
  Country: US (occurrence: US)
  Receive Date: 20140528
  Receipt Date: 20140528
  Transmission Date: 20141212
  Serious: Yes (Other)
  Sender: FDA-Public Use
  Company Number: US-SA-2014SA065763

PATIENT
  Age: 56 Year
  Sex: Female

DRUGS (2)
  1. LANTUS [Suspect]
     Indication: TYPE 2 DIABETES MELLITUS
     Dosage: DOSE: 100-130 UNITS
     Route: 058
     Dates: start: 2004
  2. HUMALOG [Concomitant]
     Dosage: DOSE: SLIDING SCALE BUT AVERAGES 30 UNITS TID
     Dates: start: 2004

REACTIONS (1)
  - Pancreatic carcinoma [Recovered/Resolved]
